FAERS Safety Report 25006779 (Version 2)
Quarter: 2025Q4

REPORT INFORMATION
  Report Type: Spontaneous
  Country: CA (occurrence: CA)
  Receive Date: 20250225
  Receipt Date: 20251030
  Transmission Date: 20260118
  Serious: Yes (Life-Threatening, Hospitalization, Disabling, Other)
  Sender: BRISTOL MYERS SQUIBB
  Company Number: CA-BRISTOL-MYERS SQUIBB COMPANY-2025-023106

PATIENT
  Age: 43 Year
  Sex: Female
  Weight: 68 kg

DRUGS (326)
  1. TRIAMCINOLONE ACETONIDE [Suspect]
     Active Substance: TRIAMCINOLONE ACETONIDE
     Indication: Rheumatoid arthritis
  2. TRIAMCINOLONE ACETONIDE [Suspect]
     Active Substance: TRIAMCINOLONE ACETONIDE
     Route: 048
  3. ALENDRONIC ACID [Concomitant]
     Active Substance: ALENDRONIC ACID
     Indication: Rheumatoid arthritis
  4. ALENDRONIC ACID [Concomitant]
     Active Substance: ALENDRONIC ACID
  5. ALENDRONIC ACID [Concomitant]
     Active Substance: ALENDRONIC ACID
     Route: 048
  6. ANAKINRA [Concomitant]
     Active Substance: ANAKINRA
     Indication: Product used for unknown indication
  7. ANAKINRA [Concomitant]
     Active Substance: ANAKINRA
  8. ANAKINRA [Concomitant]
     Active Substance: ANAKINRA
     Route: 048
  9. ANAKINRA [Concomitant]
     Active Substance: ANAKINRA
     Route: 048
  10. ANAKINRA [Concomitant]
     Active Substance: ANAKINRA
  11. ANAKINRA [Concomitant]
     Active Substance: ANAKINRA
  12. ANAKINRA [Concomitant]
     Active Substance: ANAKINRA
  13. ANAKINRA [Concomitant]
     Active Substance: ANAKINRA
  14. ANAKINRA [Concomitant]
     Active Substance: ANAKINRA
  15. ANAKINRA [Concomitant]
     Active Substance: ANAKINRA
  16. ANAKINRA [Concomitant]
     Active Substance: ANAKINRA
  17. LEFLUNOMIDE [Concomitant]
     Active Substance: LEFLUNOMIDE
     Indication: Rheumatoid arthritis
  18. LEFLUNOMIDE [Concomitant]
     Active Substance: LEFLUNOMIDE
  19. LEFLUNOMIDE [Concomitant]
     Active Substance: LEFLUNOMIDE
  20. LEFLUNOMIDE [Concomitant]
     Active Substance: LEFLUNOMIDE
  21. LEFLUNOMIDE [Concomitant]
     Active Substance: LEFLUNOMIDE
  22. LEFLUNOMIDE [Concomitant]
     Active Substance: LEFLUNOMIDE
  23. CETIRIZINE [Concomitant]
     Active Substance: CETIRIZINE HYDROCHLORIDE
     Indication: Product used for unknown indication
  24. CETIRIZINE [Concomitant]
     Active Substance: CETIRIZINE HYDROCHLORIDE
     Route: 048
  25. CETIRIZINE [Concomitant]
     Active Substance: CETIRIZINE HYDROCHLORIDE
  26. CETIRIZINE [Concomitant]
     Active Substance: CETIRIZINE HYDROCHLORIDE
     Route: 048
  27. CETIRIZINE [Concomitant]
     Active Substance: CETIRIZINE HYDROCHLORIDE
  28. CETIRIZINE [Concomitant]
     Active Substance: CETIRIZINE HYDROCHLORIDE
  29. CETIRIZINE [Concomitant]
     Active Substance: CETIRIZINE HYDROCHLORIDE
     Route: 048
  30. CETIRIZINE [Concomitant]
     Active Substance: CETIRIZINE HYDROCHLORIDE
  31. CETIRIZINE [Concomitant]
     Active Substance: CETIRIZINE HYDROCHLORIDE
     Route: 048
  32. CETIRIZINE [Concomitant]
     Active Substance: CETIRIZINE HYDROCHLORIDE
  33. CETIRIZINE [Concomitant]
     Active Substance: CETIRIZINE HYDROCHLORIDE
  34. CETIRIZINE [Concomitant]
     Active Substance: CETIRIZINE HYDROCHLORIDE
     Route: 048
  35. CETIRIZINE [Concomitant]
     Active Substance: CETIRIZINE HYDROCHLORIDE
     Route: 048
  36. CETIRIZINE [Concomitant]
     Active Substance: CETIRIZINE HYDROCHLORIDE
  37. CETIRIZINE [Concomitant]
     Active Substance: CETIRIZINE HYDROCHLORIDE
     Route: 048
  38. CETIRIZINE [Concomitant]
     Active Substance: CETIRIZINE HYDROCHLORIDE
  39. CETIRIZINE [Concomitant]
     Active Substance: CETIRIZINE HYDROCHLORIDE
     Route: 048
  40. CETIRIZINE [Concomitant]
     Active Substance: CETIRIZINE HYDROCHLORIDE
     Route: 048
  41. CETIRIZINE [Concomitant]
     Active Substance: CETIRIZINE HYDROCHLORIDE
     Route: 048
  42. CETIRIZINE [Concomitant]
     Active Substance: CETIRIZINE HYDROCHLORIDE
  43. CETIRIZINE [Concomitant]
     Active Substance: CETIRIZINE HYDROCHLORIDE
  44. CETIRIZINE [Concomitant]
     Active Substance: CETIRIZINE HYDROCHLORIDE
  45. CETIRIZINE HYDROCHLORIDE [Concomitant]
     Active Substance: CETIRIZINE HYDROCHLORIDE
     Indication: Rheumatoid arthritis
     Route: 058
  46. HYDROCORTISONE ACETATE [Concomitant]
     Active Substance: HYDROCORTISONE ACETATE
     Indication: Rheumatoid arthritis
     Route: 016
  47. HYDROCORTISONE ACETATE [Concomitant]
     Active Substance: HYDROCORTISONE ACETATE
     Route: 048
  48. HYDROCORTISONE ACETATE [Concomitant]
     Active Substance: HYDROCORTISONE ACETATE
     Route: 003
  49. HYDROCORTISONE ACETATE [Concomitant]
     Active Substance: HYDROCORTISONE ACETATE
  50. HYDROCORTISONE ACETATE [Concomitant]
     Active Substance: HYDROCORTISONE ACETATE
  51. HYDROCORTISONE ACETATE [Concomitant]
     Active Substance: HYDROCORTISONE ACETATE
     Route: 048
  52. HYDROCORTISONE ACETATE [Concomitant]
     Active Substance: HYDROCORTISONE ACETATE
  53. HYDROCORTISONE ACETATE [Concomitant]
     Active Substance: HYDROCORTISONE ACETATE
     Route: 003
  54. HYDROCORTISONE ACETATE [Concomitant]
     Active Substance: HYDROCORTISONE ACETATE
     Route: 048
  55. HYDROCORTISONE ACETATE [Concomitant]
     Active Substance: HYDROCORTISONE ACETATE
     Route: 058
  56. HYDROCORTISONE ACETATE [Concomitant]
     Active Substance: HYDROCORTISONE ACETATE
     Route: 058
  57. COSENTYX [Concomitant]
     Active Substance: SECUKINUMAB
     Indication: Psoriatic arthropathy
  58. DEXAMETHASONE [Concomitant]
     Active Substance: DEXAMETHASONE
     Indication: Product used for unknown indication
     Route: 048
  59. DEXAMETHASONE [Concomitant]
     Active Substance: DEXAMETHASONE
     Route: 016
  60. DEXAMETHASONE [Concomitant]
     Active Substance: DEXAMETHASONE
  61. DEXAMETHASONE [Concomitant]
     Active Substance: DEXAMETHASONE
     Route: 048
  62. DEXAMETHASONE [Concomitant]
     Active Substance: DEXAMETHASONE
  63. DEXAMETHASONE [Concomitant]
     Active Substance: DEXAMETHASONE
  64. DEXAMETHASONE [Concomitant]
     Active Substance: DEXAMETHASONE
     Route: 016
  65. DEXAMETHASONE [Concomitant]
     Active Substance: DEXAMETHASONE
     Route: 048
  66. DEXAMETHASONE [Concomitant]
     Active Substance: DEXAMETHASONE
     Route: 047
  67. DEXAMETHASONE [Concomitant]
     Active Substance: DEXAMETHASONE
     Route: 048
  68. DEXAMETHASONE [Concomitant]
     Active Substance: DEXAMETHASONE
     Route: 048
  69. DEXAMETHASONE [Concomitant]
     Active Substance: DEXAMETHASONE
     Route: 048
  70. DEXAMETHASONE [Concomitant]
     Active Substance: DEXAMETHASONE
     Route: 048
  71. DEXAMETHASONE [Concomitant]
     Active Substance: DEXAMETHASONE
  72. DEXAMETHASONE [Concomitant]
     Active Substance: DEXAMETHASONE
     Route: 048
  73. DEXAMETHASONE [Concomitant]
     Active Substance: DEXAMETHASONE
  74. DEXAMETHASONE [Concomitant]
     Active Substance: DEXAMETHASONE
  75. DICLOFENAC [Concomitant]
     Active Substance: DICLOFENAC
     Indication: Product used for unknown indication
  76. DICLOFENAC [Concomitant]
     Active Substance: DICLOFENAC
  77. DICLOFENAC [Concomitant]
     Active Substance: DICLOFENAC
  78. DICLOFENAC [Concomitant]
     Active Substance: DICLOFENAC
  79. DICLOFENAC [Concomitant]
     Active Substance: DICLOFENAC
  80. DICLOFENAC DIETHYLAMINE [Concomitant]
     Active Substance: DICLOFENAC DIETHYLAMINE
     Indication: Product used for unknown indication
     Route: 003
  81. DICLOFENAC DIETHYLAMINE [Concomitant]
     Active Substance: DICLOFENAC DIETHYLAMINE
  82. DICLOFENAC DIETHYLAMINE [Concomitant]
     Active Substance: DICLOFENAC DIETHYLAMINE
  83. DICLOFENAC DIETHYLAMINE [Concomitant]
     Active Substance: DICLOFENAC DIETHYLAMINE
     Route: 048
  84. DICLOFENAC DIETHYLAMINE [Concomitant]
     Active Substance: DICLOFENAC DIETHYLAMINE
  85. DICLOFENAC DIETHYLAMINE [Concomitant]
     Active Substance: DICLOFENAC DIETHYLAMINE
  86. DICLOFENAC DIETHYLAMINE [Concomitant]
     Active Substance: DICLOFENAC DIETHYLAMINE
  87. DICLOFENAC DIETHYLAMINE [Concomitant]
     Active Substance: DICLOFENAC DIETHYLAMINE
     Route: 048
  88. DICLOFENAC POTASSIUM [Concomitant]
     Active Substance: DICLOFENAC POTASSIUM
     Indication: Product used for unknown indication
     Route: 047
  89. DICLOFENAC POTASSIUM [Concomitant]
     Active Substance: DICLOFENAC POTASSIUM
  90. DICLOFENAC POTASSIUM [Concomitant]
     Active Substance: DICLOFENAC POTASSIUM
  91. DICLOFENAC POTASSIUM [Concomitant]
     Active Substance: DICLOFENAC POTASSIUM
     Route: 048
  92. ERELZI [Concomitant]
     Active Substance: ETANERCEPT-SZZS
     Indication: Rheumatoid arthritis
     Route: 058
  93. ERELZI [Concomitant]
     Active Substance: ETANERCEPT-SZZS
  94. ERELZI [Concomitant]
     Active Substance: ETANERCEPT-SZZS
  95. ERELZI [Concomitant]
     Active Substance: ETANERCEPT-SZZS
  96. ERELZI [Concomitant]
     Active Substance: ETANERCEPT-SZZS
     Route: 058
  97. ERELZI [Concomitant]
     Active Substance: ETANERCEPT-SZZS
     Route: 058
  98. ERELZI [Concomitant]
     Active Substance: ETANERCEPT-SZZS
     Dosage: SUBDERMAL
  99. FOLIC ACID [Concomitant]
     Active Substance: FOLIC ACID
     Indication: Rheumatoid arthritis
     Route: 048
  100. FOLIC ACID [Concomitant]
     Active Substance: FOLIC ACID
  101. FOLIC ACID [Concomitant]
     Active Substance: FOLIC ACID
  102. FOLIC ACID [Concomitant]
     Active Substance: FOLIC ACID
  103. FOLIC ACID [Concomitant]
     Active Substance: FOLIC ACID
     Route: 048
  104. FOLIC ACID [Concomitant]
     Active Substance: FOLIC ACID
  105. FOLIC ACID [Concomitant]
     Active Substance: FOLIC ACID
  106. FOLIC ACID [Concomitant]
     Active Substance: FOLIC ACID
  107. FOLIC ACID [Concomitant]
     Active Substance: FOLIC ACID
  108. FOLIC ACID [Concomitant]
     Active Substance: FOLIC ACID
     Route: 058
  109. FOLIC ACID [Concomitant]
     Active Substance: FOLIC ACID
  110. FOLIC ACID [Concomitant]
     Active Substance: FOLIC ACID
     Route: 048
  111. FOLIC ACID [Concomitant]
     Active Substance: FOLIC ACID
     Route: 048
  112. FOLIC ACID [Concomitant]
     Active Substance: FOLIC ACID
  113. FOLIC ACID [Concomitant]
     Active Substance: FOLIC ACID
     Route: 048
  114. FOLIC ACID [Concomitant]
     Active Substance: FOLIC ACID
  115. FOLIC ACID [Concomitant]
     Active Substance: FOLIC ACID
     Route: 048
  116. FOLIC ACID [Concomitant]
     Active Substance: FOLIC ACID
     Route: 058
  117. FOLIC ACID [Concomitant]
     Active Substance: FOLIC ACID
  118. FOLIC ACID [Concomitant]
     Active Substance: FOLIC ACID
  119. FOLIC ACID [Concomitant]
     Active Substance: FOLIC ACID
  120. FOLIC ACID [Concomitant]
     Active Substance: FOLIC ACID
  121. FOLIC ACID [Concomitant]
     Active Substance: FOLIC ACID
  122. FOLIC ACID [Concomitant]
     Active Substance: FOLIC ACID
     Route: 048
  123. FOLIC ACID [Concomitant]
     Active Substance: FOLIC ACID
  124. FOLIC ACID [Concomitant]
     Active Substance: FOLIC ACID
  125. FOLIC ACID [Concomitant]
     Active Substance: FOLIC ACID
  126. FOLIC ACID [Concomitant]
     Active Substance: FOLIC ACID
  127. FOLIC ACID [Concomitant]
     Active Substance: FOLIC ACID
  128. FOLIC ACID [Concomitant]
     Active Substance: FOLIC ACID
     Route: 048
  129. FOLIC ACID [Concomitant]
     Active Substance: FOLIC ACID
  130. FOLIC ACID [Concomitant]
     Active Substance: FOLIC ACID
  131. FOLIC ACID [Concomitant]
     Active Substance: FOLIC ACID
     Route: 048
  132. FOLIC ACID [Concomitant]
     Active Substance: FOLIC ACID
     Route: 048
  133. FOLIC ACID [Concomitant]
     Active Substance: FOLIC ACID
  134. FOLIC ACID [Concomitant]
     Active Substance: FOLIC ACID
  135. FOLIC ACID [Concomitant]
     Active Substance: FOLIC ACID
  136. HYRIMOZ [Concomitant]
     Active Substance: ADALIMUMAB-ADAZ
     Indication: Rheumatoid arthritis
     Route: 058
  137. HYRIMOZ [Concomitant]
     Active Substance: ADALIMUMAB-ADAZ
     Dosage: SOLUTION SUBCUTANEOUS, ROUTE OF ADMIN: SUBDERMAL
  138. HYRIMOZ [Concomitant]
     Active Substance: ADALIMUMAB-ADAZ
     Route: 058
  139. HYRIMOZ [Concomitant]
     Active Substance: ADALIMUMAB-ADAZ
     Dosage: SUBDERMAL
     Route: 058
  140. HUMAN IMMUNOGLOBULIN G [Concomitant]
     Active Substance: HUMAN IMMUNOGLOBULIN G
     Indication: Product used for unknown indication
     Route: 058
  141. HUMAN IMMUNOGLOBULIN G [Concomitant]
     Active Substance: HUMAN IMMUNOGLOBULIN G
     Route: 058
  142. HUMAN IMMUNOGLOBULIN G [Concomitant]
     Active Substance: HUMAN IMMUNOGLOBULIN G
     Route: 058
  143. HUMAN IMMUNOGLOBULIN G [Concomitant]
     Active Substance: HUMAN IMMUNOGLOBULIN G
     Route: 058
  144. HUMAN IMMUNOGLOBULIN G [Concomitant]
     Active Substance: HUMAN IMMUNOGLOBULIN G
  145. HUMAN IMMUNOGLOBULIN G [Concomitant]
     Active Substance: HUMAN IMMUNOGLOBULIN G
     Route: 048
  146. HUMAN IMMUNOGLOBULIN G [Concomitant]
     Active Substance: HUMAN IMMUNOGLOBULIN G
     Route: 048
  147. HUMAN IMMUNOGLOBULIN G [Concomitant]
     Active Substance: HUMAN IMMUNOGLOBULIN G
     Route: 048
  148. HUMAN IMMUNOGLOBULIN G [Concomitant]
     Active Substance: HUMAN IMMUNOGLOBULIN G
  149. HUMAN IMMUNOGLOBULIN G [Concomitant]
     Active Substance: HUMAN IMMUNOGLOBULIN G
     Route: 058
  150. HUMAN IMMUNOGLOBULIN G [Concomitant]
     Active Substance: HUMAN IMMUNOGLOBULIN G
     Route: 058
  151. HUMAN IMMUNOGLOBULIN G [Concomitant]
     Active Substance: HUMAN IMMUNOGLOBULIN G
     Route: 058
  152. HUMAN IMMUNOGLOBULIN G [Concomitant]
     Active Substance: HUMAN IMMUNOGLOBULIN G
     Route: 058
  153. HUMAN IMMUNOGLOBULIN G [Concomitant]
     Active Substance: HUMAN IMMUNOGLOBULIN G
     Route: 058
  154. HUMAN IMMUNOGLOBULIN G [Concomitant]
     Active Substance: HUMAN IMMUNOGLOBULIN G
  155. HUMAN IMMUNOGLOBULIN G [Concomitant]
     Active Substance: HUMAN IMMUNOGLOBULIN G
  156. HUMAN IMMUNOGLOBULIN G [Concomitant]
     Active Substance: HUMAN IMMUNOGLOBULIN G
     Route: 058
  157. HUMAN IMMUNOGLOBULIN G [Concomitant]
     Active Substance: HUMAN IMMUNOGLOBULIN G
     Route: 058
  158. HUMAN IMMUNOGLOBULIN G [Concomitant]
     Active Substance: HUMAN IMMUNOGLOBULIN G
  159. HUMAN IMMUNOGLOBULIN G [Concomitant]
     Active Substance: HUMAN IMMUNOGLOBULIN G
  160. LEVOCETIRIZINE HYDROCHLORIDE [Concomitant]
     Active Substance: LEVOCETIRIZINE HYDROCHLORIDE
     Indication: Product used for unknown indication
     Route: 042
  161. LEVOCETIRIZINE HYDROCHLORIDE [Concomitant]
     Active Substance: LEVOCETIRIZINE HYDROCHLORIDE
     Route: 042
  162. LEVOCETIRIZINE HYDROCHLORIDE [Concomitant]
     Active Substance: LEVOCETIRIZINE HYDROCHLORIDE
     Route: 058
  163. LEVOCETIRIZINE HYDROCHLORIDE [Concomitant]
     Active Substance: LEVOCETIRIZINE HYDROCHLORIDE
     Route: 041
  164. LEVOCETIRIZINE HYDROCHLORIDE [Concomitant]
     Active Substance: LEVOCETIRIZINE HYDROCHLORIDE
     Route: 058
  165. LEVOCETIRIZINE HYDROCHLORIDE [Concomitant]
     Active Substance: LEVOCETIRIZINE HYDROCHLORIDE
  166. LEVOCETIRIZINE HYDROCHLORIDE [Concomitant]
     Active Substance: LEVOCETIRIZINE HYDROCHLORIDE
     Route: 048
  167. LEVOCETIRIZINE HYDROCHLORIDE [Concomitant]
     Active Substance: LEVOCETIRIZINE HYDROCHLORIDE
     Route: 048
  168. LEVOCETIRIZINE HYDROCHLORIDE [Concomitant]
     Active Substance: LEVOCETIRIZINE HYDROCHLORIDE
     Route: 048
  169. LEVOCETIRIZINE HYDROCHLORIDE [Concomitant]
     Active Substance: LEVOCETIRIZINE HYDROCHLORIDE
  170. LEVOCETIRIZINE HYDROCHLORIDE [Concomitant]
     Active Substance: LEVOCETIRIZINE HYDROCHLORIDE
     Route: 016
  171. LEVOCETIRIZINE HYDROCHLORIDE [Concomitant]
     Active Substance: LEVOCETIRIZINE HYDROCHLORIDE
     Route: 048
  172. LEVOCETIRIZINE HYDROCHLORIDE [Concomitant]
     Active Substance: LEVOCETIRIZINE HYDROCHLORIDE
     Route: 005
  173. LEVOCETIRIZINE HYDROCHLORIDE [Concomitant]
     Active Substance: LEVOCETIRIZINE HYDROCHLORIDE
  174. LEVOCETIRIZINE HYDROCHLORIDE [Concomitant]
     Active Substance: LEVOCETIRIZINE HYDROCHLORIDE
  175. LEVOCETIRIZINE HYDROCHLORIDE [Concomitant]
     Active Substance: LEVOCETIRIZINE HYDROCHLORIDE
     Route: 042
  176. LEVOCETIRIZINE HYDROCHLORIDE [Concomitant]
     Active Substance: LEVOCETIRIZINE HYDROCHLORIDE
     Route: 058
  177. LEVOCETIRIZINE HYDROCHLORIDE [Concomitant]
     Active Substance: LEVOCETIRIZINE HYDROCHLORIDE
     Route: 058
  178. LYRICA [Concomitant]
     Active Substance: PREGABALIN
     Indication: Product used for unknown indication
  179. LYRICA [Concomitant]
     Active Substance: PREGABALIN
  180. METHOTREXATE [Concomitant]
     Active Substance: METHOTREXATE
     Indication: Rheumatoid arthritis
     Route: 048
  181. METHOTREXATE [Concomitant]
     Active Substance: METHOTREXATE
     Route: 005
  182. METHOTREXATE [Concomitant]
     Active Substance: METHOTREXATE
  183. METHOTREXATE [Concomitant]
     Active Substance: METHOTREXATE
  184. METHOTREXATE [Concomitant]
     Active Substance: METHOTREXATE
  185. METHOTREXATE [Concomitant]
     Active Substance: METHOTREXATE
     Route: 058
  186. METHOTREXATE [Concomitant]
     Active Substance: METHOTREXATE
  187. METHOTREXATE [Concomitant]
     Active Substance: METHOTREXATE
     Route: 058
  188. METHOTREXATE [Concomitant]
     Active Substance: METHOTREXATE
  189. METHOTREXATE [Concomitant]
     Active Substance: METHOTREXATE
     Route: 058
  190. METHOTREXATE [Concomitant]
     Active Substance: METHOTREXATE
  191. METHOTREXATE [Concomitant]
     Active Substance: METHOTREXATE
  192. METHOTREXATE [Concomitant]
     Active Substance: METHOTREXATE
  193. METHOTREXATE [Concomitant]
     Active Substance: METHOTREXATE
  194. METHOTREXATE [Concomitant]
     Active Substance: METHOTREXATE
     Route: 058
  195. METHOTREXATE [Concomitant]
     Active Substance: METHOTREXATE
  196. METHOTREXATE [Concomitant]
     Active Substance: METHOTREXATE
  197. METHOTREXATE [Concomitant]
     Active Substance: METHOTREXATE
  198. METHOTREXATE [Concomitant]
     Active Substance: METHOTREXATE
     Route: 048
  199. METHOTREXATE [Concomitant]
     Active Substance: METHOTREXATE
     Route: 048
  200. METHOTREXATE [Concomitant]
     Active Substance: METHOTREXATE
     Route: 048
  201. METHOTREXATE [Concomitant]
     Active Substance: METHOTREXATE
     Route: 058
  202. METHOTREXATE [Concomitant]
     Active Substance: METHOTREXATE
  203. METHOTREXATE [Concomitant]
     Active Substance: METHOTREXATE
     Route: 048
  204. METHOTREXATE [Concomitant]
     Active Substance: METHOTREXATE
     Route: 048
  205. METHOTREXATE [Concomitant]
     Active Substance: METHOTREXATE
  206. METHOTREXATE [Concomitant]
     Active Substance: METHOTREXATE
  207. METHOTREXATE [Concomitant]
     Active Substance: METHOTREXATE
     Route: 016
  208. METHOTREXATE [Concomitant]
     Active Substance: METHOTREXATE
     Route: 048
  209. METHOTREXATE [Concomitant]
     Active Substance: METHOTREXATE
     Route: 005
  210. METHOTREXATE [Concomitant]
     Active Substance: METHOTREXATE
  211. METHOTREXATE [Concomitant]
     Active Substance: METHOTREXATE
     Route: 048
  212. METHOTREXATE [Concomitant]
     Active Substance: METHOTREXATE
  213. METHOTREXATE [Concomitant]
     Active Substance: METHOTREXATE
  214. METHOTREXATE [Concomitant]
     Active Substance: METHOTREXATE
  215. METHOTREXATE [Concomitant]
     Active Substance: METHOTREXATE
  216. METHOTREXATE [Concomitant]
     Active Substance: METHOTREXATE
  217. METHOTREXATE [Concomitant]
     Active Substance: METHOTREXATE
  218. METHOTREXATE [Concomitant]
     Active Substance: METHOTREXATE
  219. METHOTREXATE [Concomitant]
     Active Substance: METHOTREXATE
  220. METHOTREXATE [Concomitant]
     Active Substance: METHOTREXATE
     Route: 058
  221. METHOTREXATE [Concomitant]
     Active Substance: METHOTREXATE
     Route: 058
  222. METHOTREXATE [Concomitant]
     Active Substance: METHOTREXATE
  223. METHOTREXATE [Concomitant]
     Active Substance: METHOTREXATE
     Route: 058
  224. METHOTREXATE [Concomitant]
     Active Substance: METHOTREXATE
     Route: 058
  225. METHOTREXATE [Concomitant]
     Active Substance: METHOTREXATE
     Route: 048
  226. METHOTREXATE [Concomitant]
     Active Substance: METHOTREXATE
     Route: 013
  227. METHOTREXATE [Concomitant]
     Active Substance: METHOTREXATE
  228. METHOTREXATE [Concomitant]
     Active Substance: METHOTREXATE
     Route: 048
  229. METHOTREXATE [Concomitant]
     Active Substance: METHOTREXATE
     Route: 048
  230. METHOTREXATE [Concomitant]
     Active Substance: METHOTREXATE
  231. METHOTREXATE [Concomitant]
     Active Substance: METHOTREXATE
     Route: 048
  232. METHOTREXATE [Concomitant]
     Active Substance: METHOTREXATE
     Route: 058
  233. METHOTREXATE [Concomitant]
     Active Substance: METHOTREXATE
     Route: 048
  234. METHOTREXATE [Concomitant]
     Active Substance: METHOTREXATE
     Route: 048
  235. METHOTREXATE [Concomitant]
     Active Substance: METHOTREXATE
     Route: 048
  236. METHOTREXATE [Concomitant]
     Active Substance: METHOTREXATE
     Route: 048
  237. METHOTREXATE [Concomitant]
     Active Substance: METHOTREXATE
  238. METHOTREXATE [Concomitant]
     Active Substance: METHOTREXATE
     Route: 048
  239. METHOTREXATE [Concomitant]
     Active Substance: METHOTREXATE
     Route: 048
  240. METHOTREXATE [Concomitant]
     Active Substance: METHOTREXATE
     Route: 013
  241. METHOTREXATE [Concomitant]
     Active Substance: METHOTREXATE
     Route: 013
  242. METHOTREXATE [Concomitant]
     Active Substance: METHOTREXATE
     Route: 058
  243. METHOTREXATE [Concomitant]
     Active Substance: METHOTREXATE
     Route: 048
  244. METHOTREXATE [Concomitant]
     Active Substance: METHOTREXATE
  245. METHOTREXATE [Concomitant]
     Active Substance: METHOTREXATE
     Route: 048
  246. METHOTREXATE [Concomitant]
     Active Substance: METHOTREXATE
     Route: 013
  247. METHOTREXATE [Concomitant]
     Active Substance: METHOTREXATE
     Route: 048
  248. METHOTREXATE [Concomitant]
     Active Substance: METHOTREXATE
     Route: 048
  249. METHOTREXATE [Concomitant]
     Active Substance: METHOTREXATE
  250. METHOTREXATE [Concomitant]
     Active Substance: METHOTREXATE
  251. METHOTREXATE [Concomitant]
     Active Substance: METHOTREXATE
     Route: 048
  252. METHOTREXATE [Concomitant]
     Active Substance: METHOTREXATE
     Route: 048
  253. METHOTREXATE [Concomitant]
     Active Substance: METHOTREXATE
     Route: 048
  254. OXYCODONE [Concomitant]
     Active Substance: OXYCODONE
     Indication: Product used for unknown indication
     Route: 003
  255. OXYCODONE [Concomitant]
     Active Substance: OXYCODONE
     Route: 058
  256. OXYCODONE [Concomitant]
     Active Substance: OXYCODONE
     Route: 048
  257. OXYCODONE [Concomitant]
     Active Substance: OXYCODONE
  258. OXYCODONE [Concomitant]
     Active Substance: OXYCODONE
  259. OXYCODONE [Concomitant]
     Active Substance: OXYCODONE
     Route: 048
  260. OXYCODONE [Concomitant]
     Active Substance: OXYCODONE
     Route: 048
  261. OXYCODONE [Concomitant]
     Active Substance: OXYCODONE
     Route: 058
  262. OXYCODONE [Concomitant]
     Active Substance: OXYCODONE
     Route: 013
  263. OXYCODONE [Concomitant]
     Active Substance: OXYCODONE
     Route: 048
  264. OXYCODONE [Concomitant]
     Active Substance: OXYCODONE
     Route: 048
  265. OXYCODONE [Concomitant]
     Active Substance: OXYCODONE
     Route: 048
  266. OXYCODONE [Concomitant]
     Active Substance: OXYCODONE
     Route: 048
  267. OXYCODONE [Concomitant]
     Active Substance: OXYCODONE
     Dosage: SUB-DERMAL
  268. OXYCODONE [Concomitant]
     Active Substance: OXYCODONE
     Route: 048
  269. OXYCODONE [Concomitant]
     Active Substance: OXYCODONE
     Dosage: SUB-DERMAL
  270. PREGABALIN [Concomitant]
     Active Substance: PREGABALIN
     Indication: Product used for unknown indication
  271. PREGABALIN [Concomitant]
     Active Substance: PREGABALIN
  272. LEFLUNOMIDE [Concomitant]
     Active Substance: LEFLUNOMIDE
     Indication: Rheumatoid arthritis
     Route: 048
  273. LEFLUNOMIDE [Concomitant]
     Active Substance: LEFLUNOMIDE
  274. LEFLUNOMIDE [Concomitant]
     Active Substance: LEFLUNOMIDE
     Route: 048
  275. LEFLUNOMIDE [Concomitant]
     Active Substance: LEFLUNOMIDE
     Route: 048
  276. LEFLUNOMIDE [Concomitant]
     Active Substance: LEFLUNOMIDE
     Route: 048
  277. LEFLUNOMIDE [Concomitant]
     Active Substance: LEFLUNOMIDE
  278. LEFLUNOMIDE [Concomitant]
     Active Substance: LEFLUNOMIDE
  279. LEFLUNOMIDE [Concomitant]
     Active Substance: LEFLUNOMIDE
     Route: 048
  280. LEFLUNOMIDE [Concomitant]
     Active Substance: LEFLUNOMIDE
     Route: 048
  281. LEFLUNOMIDE [Concomitant]
     Active Substance: LEFLUNOMIDE
  282. LEFLUNOMIDE [Concomitant]
     Active Substance: LEFLUNOMIDE
  283. LEFLUNOMIDE [Concomitant]
     Active Substance: LEFLUNOMIDE
  284. LEFLUNOMIDE [Concomitant]
     Active Substance: LEFLUNOMIDE
  285. LEFLUNOMIDE [Concomitant]
     Active Substance: LEFLUNOMIDE
     Route: 048
  286. LEFLUNOMIDE [Concomitant]
     Active Substance: LEFLUNOMIDE
     Route: 048
  287. LEFLUNOMIDE [Concomitant]
     Active Substance: LEFLUNOMIDE
  288. LEFLUNOMIDE [Concomitant]
     Active Substance: LEFLUNOMIDE
     Route: 048
  289. LEFLUNOMIDE [Concomitant]
     Active Substance: LEFLUNOMIDE
  290. MYCOPHENOLATE MOFETIL [Concomitant]
     Active Substance: MYCOPHENOLATE MOFETIL
     Indication: Psoriatic arthropathy
     Route: 048
  291. MYCOPHENOLATE MOFETIL [Concomitant]
     Active Substance: MYCOPHENOLATE MOFETIL
     Route: 048
  292. VITAMIN D3 [Concomitant]
     Active Substance: CHOLECALCIFEROL
     Indication: Product used for unknown indication
  293. VITAMIN D3 [Concomitant]
     Active Substance: CHOLECALCIFEROL
  294. VOLTAREN [Concomitant]
     Active Substance: DICLOFENAC SODIUM
     Indication: Product used for unknown indication
  295. VOLTAREN [Concomitant]
     Active Substance: DICLOFENAC SODIUM
  296. VOLTAREN [Concomitant]
     Active Substance: DICLOFENAC SODIUM
  297. VOLTAREN [Concomitant]
     Active Substance: DICLOFENAC SODIUM
     Route: 048
  298. VOLTAREN [Concomitant]
     Active Substance: DICLOFENAC SODIUM
     Route: 003
  299. VOLTAREN [Concomitant]
     Active Substance: DICLOFENAC SODIUM
  300. VOLTAREN [Concomitant]
     Active Substance: DICLOFENAC SODIUM
  301. VOLTAREN [Concomitant]
     Active Substance: DICLOFENAC SODIUM
  302. VOLTAREN [Concomitant]
     Active Substance: DICLOFENAC SODIUM
     Route: 048
  303. VOLTAREN [Concomitant]
     Active Substance: DICLOFENAC SODIUM
     Route: 047
  304. VOLTAREN [Concomitant]
     Active Substance: DICLOFENAC SODIUM
  305. VOLTAREN [Concomitant]
     Active Substance: DICLOFENAC SODIUM
  306. VOLTAREN [Concomitant]
     Active Substance: DICLOFENAC SODIUM
     Route: 048
  307. VOLTAREN [Concomitant]
     Active Substance: DICLOFENAC SODIUM
  308. VOLTAREN [Concomitant]
     Active Substance: DICLOFENAC SODIUM
  309. VOLTAREN [Concomitant]
     Active Substance: DICLOFENAC SODIUM
     Route: 047
  310. VOLTAREN [Concomitant]
     Active Substance: DICLOFENAC SODIUM
  311. RITUXIMAB [Concomitant]
     Active Substance: RITUXIMAB
     Indication: Rheumatoid arthritis
     Route: 048
  312. RITUXIMAB [Concomitant]
     Active Substance: RITUXIMAB
     Route: 042
  313. RITUXIMAB [Concomitant]
     Active Substance: RITUXIMAB
     Route: 042
  314. RITUXIMAB [Concomitant]
     Active Substance: RITUXIMAB
     Route: 058
  315. RITUXIMAB [Concomitant]
     Active Substance: RITUXIMAB
     Route: 042
  316. RITUXIMAB [Concomitant]
     Active Substance: RITUXIMAB
     Route: 058
  317. RITUXIMAB [Concomitant]
     Active Substance: RITUXIMAB
     Route: 041
  318. RITUXIMAB [Concomitant]
     Active Substance: RITUXIMAB
     Route: 042
  319. RITUXIMAB [Concomitant]
     Active Substance: RITUXIMAB
     Route: 042
  320. RITUXIMAB [Concomitant]
     Active Substance: RITUXIMAB
     Route: 042
  321. RITUXIMAB [Concomitant]
     Active Substance: RITUXIMAB
     Route: 043
  322. RITUXIMAB [Concomitant]
     Active Substance: RITUXIMAB
     Route: 048
  323. RITUXIMAB [Concomitant]
     Active Substance: RITUXIMAB
     Route: 048
  324. RITUXIMAB [Concomitant]
     Active Substance: RITUXIMAB
  325. RITUXIMAB [Concomitant]
     Active Substance: RITUXIMAB
     Route: 048
  326. RITUXIMAB [Concomitant]
     Active Substance: RITUXIMAB

REACTIONS (12)
  - Adrenal insufficiency [Unknown]
  - Drug tolerance [Unknown]
  - Hypokalaemia [Unknown]
  - Immunodeficiency [Unknown]
  - Joint destruction [Unknown]
  - Loss of consciousness [Unknown]
  - Polyarthritis [Unknown]
  - Therapeutic product effect decreased [Unknown]
  - Therapy non-responder [Unknown]
  - Hospitalisation [Unknown]
  - Adverse event [Unknown]
  - Off label use [Unknown]
